FAERS Safety Report 4694957-1 (Version None)
Quarter: 2005Q2

REPORT INFORMATION
  Report Type: 
  Country: None (occurrence: None)
  Receive Date: 20050617
  Receipt Date: 20050606
  Transmission Date: 20051028
  Serious: Yes (Other)
  Sender: FDA-Public Use
  Company Number: 215058

PATIENT
  Age: 51 Year
  Sex: Female

DRUGS (7)
  1. RITUXAN [Suspect]
     Indication: NON-HODGKIN'S LYMPHOMA
     Dosage: 530 MG IV DRIP
     Route: 041
     Dates: start: 20011009, end: 20020129
  2. CYCLOPHOSPHAMIDE [Suspect]
     Indication: NON-HODGKIN'S LYMPHOMA
     Dosage: 1060 MG IV DRIP
     Route: 041
     Dates: start: 20011011, end: 20020202
  3. DOXORUBICIN HYDROCHLORIDE [Suspect]
     Indication: NON-HODGKIN'S LYMPHOMA
     Dosage: 70 MG IV DRIP
     Route: 041
     Dates: start: 20011011, end: 20020202
  4. ONCOVIN [Suspect]
     Indication: NON-HODGKIN'S LYMPHOMA
     Dosage: 2 MG INTRAVENOUS
     Route: 042
     Dates: start: 20011011, end: 20020202
  5. PREDONINE (PREDNISOLONE ACETATE, PREDNISOLONE, PREDNISOLONE SODIUM SUC [Suspect]
     Indication: NON-HODGKIN'S LYMPHOMA
     Dosage: 100 MG ORAL
     Route: 048
     Dates: start: 20011011, end: 20020202
  6. LOXONIN (LOXOPROFEN SODIUM) [Concomitant]
  7. DEXCHLORPHENIRAMINE MALEATE [Concomitant]

REACTIONS (6)
  - LYMPHOCYTE PERCENTAGE DECREASED [None]
  - LYMPHOCYTE PERCENTAGE INCREASED [None]
  - NEUTROPHIL COUNT DECREASED [None]
  - NEUTROPHIL PERCENTAGE INCREASED [None]
  - PLATELET COUNT DECREASED [None]
  - WHITE BLOOD CELL COUNT DECREASED [None]
